FAERS Safety Report 19108674 (Version 1)
Quarter: 2021Q2

REPORT INFORMATION
  Report Type: Report from Study
  Country: US (occurrence: US)
  Receive Date: 20210408
  Receipt Date: 20210408
  Transmission Date: 20210717
  Serious: Yes (Other)
  Sender: FDA-Public Use
  Company Number: US-JNJFOC-20160312336

PATIENT
  Age: 69 Year
  Sex: Female
  Weight: 56 kg

DRUGS (18)
  1. IMBRUVICA [Suspect]
     Active Substance: IBRUTINIB
     Indication: CHRONIC LYMPHOCYTIC LEUKAEMIA
     Route: 048
     Dates: start: 20150506
  2. IMBRUVICA [Suspect]
     Active Substance: IBRUTINIB
     Route: 048
     Dates: start: 20150513
  3. IMBRUVICA [Suspect]
     Active Substance: IBRUTINIB
     Route: 048
     Dates: start: 20161230
  4. IMBRUVICA [Suspect]
     Active Substance: IBRUTINIB
     Route: 048
  5. FAMOTIDINE. [Suspect]
     Active Substance: FAMOTIDINE
     Indication: GASTROOESOPHAGEAL REFLUX DISEASE
     Route: 065
  6. TUMS [Concomitant]
     Active Substance: CALCIUM CARBONATE
  7. IMBRUVICA [Suspect]
     Active Substance: IBRUTINIB
     Route: 048
     Dates: start: 20151225
  8. CLINDAMYCIN. [Suspect]
     Active Substance: CLINDAMYCIN
     Indication: DENTAL CARE
     Route: 065
  9. VITAMIN D [Concomitant]
     Active Substance: VITAMIN D NOS
  10. MYLANTA [Suspect]
     Active Substance: ALUMINUM HYDROXIDE\DIMETHICONE\MAGNESIUM HYDROXIDE
     Indication: PRODUCT USED FOR UNKNOWN INDICATION
     Route: 065
  11. VITAMIN C [Concomitant]
     Active Substance: ASCORBIC ACID
  12. MAGNESIUM [Concomitant]
     Active Substance: MAGNESIUM
  13. IMBRUVICA [Suspect]
     Active Substance: IBRUTINIB
     Route: 048
     Dates: start: 2017
  14. CALCIUM AND ERGOCALCIFEROL [Concomitant]
     Active Substance: CALCIUM\ERGOCALCIFEROL
  15. IMBRUVICA [Suspect]
     Active Substance: IBRUTINIB
     Route: 048
     Dates: start: 20151107
  16. IMBRUVICA [Suspect]
     Active Substance: IBRUTINIB
     Route: 048
     Dates: start: 20160210
  17. IMBRUVICA [Suspect]
     Active Substance: IBRUTINIB
     Route: 048
  18. CALCIUM [Concomitant]
     Active Substance: CALCIUM

REACTIONS (60)
  - Food intolerance [Unknown]
  - Eye pain [Unknown]
  - Nail disorder [Recovering/Resolving]
  - Chest discomfort [Unknown]
  - Nasopharyngitis [Unknown]
  - Blood pressure increased [Unknown]
  - Agitation [Unknown]
  - Contusion [Unknown]
  - Nausea [Unknown]
  - Dry eye [Unknown]
  - White blood cell count decreased [Recovered/Resolved]
  - Nail discolouration [Recovering/Resolving]
  - Fluid retention [Unknown]
  - Upper-airway cough syndrome [Unknown]
  - Food allergy [Unknown]
  - Skin ulcer [Unknown]
  - Product storage error [Unknown]
  - Dry mouth [Unknown]
  - Nodule [Unknown]
  - Chromaturia [Unknown]
  - Asthenia [Unknown]
  - Pain in extremity [Unknown]
  - Dyspepsia [Recovered/Resolved]
  - Skin burning sensation [Unknown]
  - Arthritis [Unknown]
  - Alopecia [Unknown]
  - Dysphagia [Unknown]
  - Oesophageal discomfort [Unknown]
  - Onychoclasis [Unknown]
  - Gingival disorder [Unknown]
  - Urine odour abnormal [Unknown]
  - Fatigue [Unknown]
  - Lip swelling [Unknown]
  - Blister [Unknown]
  - Corneal deposits [Unknown]
  - Muscle tightness [Recovering/Resolving]
  - Feeling cold [Unknown]
  - Heart rate increased [Unknown]
  - Injection site swelling [Unknown]
  - Lip blister [Unknown]
  - Peripheral swelling [Unknown]
  - Feeling abnormal [Recovered/Resolved]
  - Periorbital swelling [Unknown]
  - Rash papular [Unknown]
  - Blood uric acid abnormal [Unknown]
  - White blood cell count abnormal [Recovered/Resolved]
  - Swelling [Unknown]
  - Gastrooesophageal reflux disease [Recovered/Resolved]
  - Drug intolerance [Unknown]
  - Swelling face [Unknown]
  - Musculoskeletal stiffness [Recovering/Resolving]
  - Injection site bruising [Unknown]
  - Tongue discomfort [Unknown]
  - Muscle spasms [Unknown]
  - Ear pain [Unknown]
  - Diarrhoea haemorrhagic [Recovered/Resolved]
  - Dyspnoea [Unknown]
  - Arthralgia [Unknown]
  - Rash [Not Recovered/Not Resolved]
  - Myalgia [Recovering/Resolving]

NARRATIVE: CASE EVENT DATE: 2015
